FAERS Safety Report 18534927 (Version 1)
Quarter: 2020Q4

REPORT INFORMATION
  Report Type: Spontaneous
  Country: US (occurrence: US)
  Receive Date: 20201123
  Receipt Date: 20201123
  Transmission Date: 20210114
  Serious: Yes (Hospitalization, Other)
  Sender: FDA-Public Use
  Company Number: US-PURDUE-USA-2020-0162490

PATIENT
  Sex: Male

DRUGS (5)
  1. HYDROCODONE BITARTRATE AND ACETAMINOPHEN [Suspect]
     Active Substance: ACETAMINOPHEN\HYDROCODONE BITARTRATE
     Indication: PAIN
     Dosage: UNK
     Route: 048
  2. OXYCONTIN [Suspect]
     Active Substance: OXYCODONE HYDROCHLORIDE
     Indication: PAIN
     Dosage: UNK
     Route: 048
  3. OXYCODONE HYDROCHLORIDE (SIMILAR TO NDA 22-272) [Suspect]
     Active Substance: OXYCODONE HYDROCHLORIDE
     Indication: PAIN
     Dosage: UNK
     Route: 048
  4. DILAUDID [Suspect]
     Active Substance: HYDROMORPHONE HYDROCHLORIDE
     Indication: PAIN
     Dosage: UNK
     Route: 048
  5. OXYCODONE/ ACETAMINOPHEN TABLETS [Suspect]
     Active Substance: ACETAMINOPHEN\OXYCODONE HYDROCHLORIDE
     Indication: PAIN
     Dosage: UNK
     Route: 048

REACTIONS (23)
  - Mania [Unknown]
  - Euphoric mood [Unknown]
  - Dissociation [Unknown]
  - Sexually inappropriate behaviour [Unknown]
  - Personality change [Unknown]
  - Energy increased [Unknown]
  - Eating disorder [Unknown]
  - Drug dependence [Unknown]
  - Therapeutic product effect decreased [Unknown]
  - Libido increased [Unknown]
  - Speech disorder [Unknown]
  - Abdominal discomfort [Unknown]
  - Impulsive behaviour [Unknown]
  - Vomiting [Unknown]
  - Irritability [Unknown]
  - Thinking abnormal [Unknown]
  - Tachyphrenia [Unknown]
  - Disturbance in social behaviour [Unknown]
  - Depression [Unknown]
  - Fracture [Unknown]
  - Muscle atrophy [Unknown]
  - Weight decreased [Unknown]
  - Aggression [Unknown]
